FAERS Safety Report 5558192-7 (Version None)
Quarter: 2007Q4

REPORT INFORMATION
  Report Type: 
  Country: None (occurrence: None)
  Receive Date: 20071214
  Receipt Date: 20071205
  Transmission Date: 20080405
  Serious: Yes (Hospitalization)
  Sender: FDA-Public Use
  Company Number: FR-PFIZER INC-2007101785

PATIENT
  Age: 38 Year
  Sex: Female

DRUGS (4)
  1. CEFPODOXIME PROXETIL [Suspect]
     Indication: BRONCHITIS
     Dosage: TEXT:200 MG COATED TABLETS
     Route: 048
     Dates: start: 20071029, end: 20071101
  2. SURGAM [Concomitant]
     Indication: BRONCHITIS
     Dosage: TEXT:3 U TABLETS
     Route: 048
     Dates: start: 20071029, end: 20071101
  3. ACETAMINOPHEN [Concomitant]
     Indication: BRONCHITIS
     Dosage: FREQ:AS NEEDED
     Route: 048
     Dates: start: 20071029, end: 20071101
  4. BRONCHOKOD [Concomitant]
     Indication: BRONCHITIS
     Dosage: DAILY DOSE:2250MG
     Route: 048
     Dates: start: 20071029, end: 20071101

REACTIONS (4)
  - CLOSTRIDIAL INFECTION [None]
  - LOSS OF CONSCIOUSNESS [None]
  - MALAISE [None]
  - PYREXIA [None]
